FAERS Safety Report 14524733 (Version 1)
Quarter: 2018Q1

REPORT INFORMATION
  Report Type: Spontaneous
  Country: US (occurrence: US)
  Receive Date: 20180210
  Receipt Date: 20180210
  Transmission Date: 20180509
  Serious: Yes (Other)
  Sender: FDA-Public Use
  Company Number: None

PATIENT
  Age: 39 Year
  Sex: Female

DRUGS (1)
  1. OPSUMIT [Suspect]
     Active Substance: MACITENTAN
     Indication: PULMONARY EMBOLISM
     Route: 048
     Dates: start: 20180106

REACTIONS (5)
  - Cough [None]
  - Dyspnoea [None]
  - Refusal of treatment by patient [None]
  - Hypokalaemia [None]
  - Pyrexia [None]

NARRATIVE: CASE EVENT DATE: 20180203
